FAERS Safety Report 13304760 (Version 1)
Quarter: 2017Q1

REPORT INFORMATION
  Report Type: Spontaneous
  Country: US (occurrence: US)
  Receive Date: 20170307
  Receipt Date: 20170307
  Transmission Date: 20170428
  Serious: Yes (Other)
  Sender: FDA-Public Use
  Company Number: None

PATIENT
  Age: 40 Year
  Sex: Male
  Weight: 83.7 kg

DRUGS (8)
  1. RANITIDINE. [Concomitant]
     Active Substance: RANITIDINE
  2. ASA [Concomitant]
     Active Substance: ASPIRIN
  3. LEVEMIR [Suspect]
     Active Substance: INSULIN DETEMIR
     Indication: TYPE 2 DIABETES MELLITUS
     Dosage: 26 IU INTERNATIONAL UNIT(S) DAILY SUBCUTANEOUS
     Route: 058
     Dates: start: 20170125, end: 20170201
  4. ENALAPRIL [Concomitant]
     Active Substance: ENALAPRIL
  5. METFORMIN [Concomitant]
     Active Substance: METFORMIN HYDROCHLORIDE
  6. ATORVASTATIN [Concomitant]
     Active Substance: ATORVASTATIN
  7. LEVEMIR [Concomitant]
     Active Substance: INSULIN DETEMIR
  8. JANUVIA [Concomitant]
     Active Substance: SITAGLIPTIN PHOSPHATE

REACTIONS (3)
  - Rash erythematous [None]
  - Erythema [None]
  - Injection site rash [None]

NARRATIVE: CASE EVENT DATE: 20170125
